FAERS Safety Report 8879589 (Version 1)
Quarter: 2012Q4

REPORT INFORMATION
  Report Type: 
  Country: CH (occurrence: CH)
  Receive Date: 20121031
  Receipt Date: 20121031
  Transmission Date: 20130627
  Serious: Yes (Hospitalization, Congenital Anomaly)
  Sender: FDA-Public Use
  Company Number: CH-GILEAD-2012-0063654

PATIENT
  Sex: Male

DRUGS (4)
  1. TRUVADA [Suspect]
     Indication: ASYMPTOMATIC HIV INFECTION
     Dosage: 1 DF, QD
     Route: 064
     Dates: start: 20120229, end: 20121002
  2. TRIZIVIR [Suspect]
     Indication: ASYMPTOMATIC HIV INFECTION
     Dosage: 1 DF, BID
     Route: 064
     Dates: start: 2010, end: 20120228
  3. KALETRA [Suspect]
     Indication: ASYMPTOMATIC HIV INFECTION
     Dosage: 1 DF, QD
     Route: 064
     Dates: start: 20120229, end: 20121002
  4. PODOMEXEF [Suspect]
     Indication: BACTERIAL INFECTION
     Dosage: 200 mg, BID
     Route: 064

REACTIONS (10)
  - Apgar score low [Recovered/Resolved]
  - Neonatal asphyxia [Recovered/Resolved]
  - Lactic acidosis [Recovered/Resolved]
  - Small for dates baby [Unknown]
  - Renal impairment [Recovering/Resolving]
  - Congenital hearing disorder [Not Recovered/Not Resolved]
  - Cytogenetic abnormality [Not Recovered/Not Resolved]
  - Renal aplasia [Not Recovered/Not Resolved]
  - Dysmorphism [Not Recovered/Not Resolved]
  - Torticollis [Unknown]
